FAERS Safety Report 5122654-7 (Version None)
Quarter: 2006Q4

REPORT INFORMATION
  Report Type: 
  Country: None (occurrence: None)
  Receive Date: 20061005
  Receipt Date: 20061005
  Transmission Date: 20070319
  Serious: Yes (Hospitalization)
  Sender: FDA-Public Use
  Company Number: None

PATIENT
  Age: 77 Year
  Sex: Male
  Weight: 141 kg

DRUGS (19)
  1. WARFARIN SODIUM [Suspect]
     Indication: ATRIAL FIBRILLATION
     Dosage: 7.5 MG+ 5 MG M/TH+SU/TU/W/F/S PO
     Route: 048
     Dates: start: 20040401, end: 20060714
  2. WARFARIN SODIUM [Suspect]
     Indication: CARDIAC ASSISTANCE DEVICE USER
     Dosage: 7.5 MG+ 5 MG M/TH+SU/TU/W/F/S PO
     Route: 048
     Dates: start: 20040401, end: 20060714
  3. WARFARIN SODIUM [Suspect]
     Indication: CORONARY ARTERY DISEASE
     Dosage: 7.5 MG+ 5 MG M/TH+SU/TU/W/F/S PO
     Route: 048
     Dates: start: 20040401, end: 20060714
  4. MVT [Concomitant]
  5. TUMS [Concomitant]
  6. ASPIRIN [Concomitant]
  7. FERROUS SUL TAB [Concomitant]
  8. ARTHRITIS EASE + GLUCOSAMINE [Concomitant]
  9. CLOPIDOGREL BISULFATE [Concomitant]
  10. FERROUS SULFATE TAB [Concomitant]
  11. FUROSEMIDE [Concomitant]
  12. GEMFIBROZIL [Concomitant]
  13. INSULIN HUMAN [Concomitant]
  14. ISOSORBIDE MONONITRATE [Concomitant]
  15. LEVOTHYROXINE SODIUM [Concomitant]
  16. LISINOPRIL [Concomitant]
  17. SIMVASTATIN [Concomitant]
  18. WARFARIN SODIUM [Concomitant]
  19. INSULIN GLARGINE [Concomitant]

REACTIONS (4)
  - DUODENAL ULCER [None]
  - EROSIVE DUODENITIS [None]
  - GASTRITIS EROSIVE [None]
  - GASTROINTESTINAL HAEMORRHAGE [None]
